FAERS Safety Report 20478725 (Version 1)
Quarter: 2022Q1

REPORT INFORMATION
  Report Type: Spontaneous
  Country: US (occurrence: US)
  Receive Date: 20220216
  Receipt Date: 20220216
  Transmission Date: 20220423
  Serious: No
  Sender: FDA-Public Use
  Company Number: US-ORGANON-O2202USA001203

PATIENT
  Age: 22 Year
  Sex: Female
  Weight: 63.492 kg

DRUGS (1)
  1. NEXPLANON [Suspect]
     Active Substance: ETONOGESTREL
     Indication: Contraception
     Dosage: 1 ROD WAS PLACED IN LEFT ARM
     Route: 059
     Dates: start: 20220211

REACTIONS (1)
  - Implant site haemorrhage [Not Recovered/Not Resolved]

NARRATIVE: CASE EVENT DATE: 20220211
